FAERS Safety Report 22842819 (Version 4)
Quarter: 2024Q1

REPORT INFORMATION
  Report Type: Report from Study
  Country: CN (occurrence: CN)
  Receive Date: 20230821
  Receipt Date: 20240207
  Transmission Date: 20240409
  Serious: Yes (Hospitalization)
  Sender: FDA-Public Use
  Company Number: CN-TAKEDA-2023TUS042409

PATIENT
  Age: 48 Year
  Sex: Male
  Weight: 75 kg

DRUGS (6)
  1. VEDOLIZUMAB [Suspect]
     Active Substance: VEDOLIZUMAB
     Indication: Colitis ulcerative
     Dosage: 300 MILLIGRAM
     Route: 042
     Dates: start: 20230117
  2. MESALAMINE [Concomitant]
     Active Substance: MESALAMINE
     Indication: Inflammatory bowel disease
     Dosage: UNK
     Dates: start: 20210104
  3. COMPOUND CLOBETASOL PROPIONATE [Concomitant]
     Indication: Dermatitis
     Dosage: 1 GRAM, BID
     Route: 003
     Dates: start: 20230228, end: 202303
  4. COMPOUND CLOBETASOL PROPIONATE [Concomitant]
     Dosage: 1 GRAM, BID
     Route: 003
     Dates: start: 20230510, end: 202312
  5. COMPOUND FLUMETASONE [Concomitant]
     Indication: Dermatitis
     Dosage: 2 GRAM, QD
     Route: 003
     Dates: start: 20230228, end: 202303
  6. COMPOUND FLUMETASONE [Concomitant]
     Dosage: 5 GRAM, BID
     Route: 003
     Dates: start: 20230510, end: 202312

REACTIONS (2)
  - Tarsal tunnel syndrome [Not Recovered/Not Resolved]
  - Injury corneal [Recovered/Resolved]

NARRATIVE: CASE EVENT DATE: 20230411
